FAERS Safety Report 12732267 (Version 1)
Quarter: 2016Q3

REPORT INFORMATION
  Report Type: Spontaneous
  Country: US (occurrence: US)
  Receive Date: 20160909
  Receipt Date: 20160909
  Transmission Date: 20161109
  Serious: No
  Sender: FDA-Public Use
  Company Number: None

PATIENT
  Age: 55 Year
  Sex: Female

DRUGS (12)
  1. OMEPRAZOLE. [Concomitant]
     Active Substance: OMEPRAZOLE
  2. ALPRAZOLAM. [Concomitant]
     Active Substance: ALPRAZOLAM
  3. BUPROPN HCL [Concomitant]
     Active Substance: BUPROPION HYDROCHLORIDE
  4. OXYCODONE AND ACETAMINOPHEN [Concomitant]
     Active Substance: ACETAMINOPHEN\OXYCODONE HYDROCHLORIDE
  5. AUBAGIO [Suspect]
     Active Substance: TERIFLUNOMIDE
     Indication: MULTIPLE SCLEROSIS
     Route: 048
     Dates: start: 201301
  6. PRAVASTATIN. [Concomitant]
     Active Substance: PRAVASTATIN
  7. METOPROLOL TARTRATE. [Concomitant]
     Active Substance: METOPROLOL TARTRATE
  8. BACLOFEN. [Concomitant]
     Active Substance: BACLOFEN
  9. DONEPEZIL. [Concomitant]
     Active Substance: DONEPEZIL
  10. GABAPENTIN. [Concomitant]
     Active Substance: GABAPENTIN
  11. TOPIRAMATE. [Concomitant]
     Active Substance: TOPIRAMATE
  12. METHIMAZOLE. [Concomitant]
     Active Substance: METHIMAZOLE

REACTIONS (3)
  - Memory impairment [None]
  - Multiple sclerosis relapse [None]
  - Drug dose omission [None]

NARRATIVE: CASE EVENT DATE: 2016
